FAERS Safety Report 10070132 (Version 1)
Quarter: 2014Q2

REPORT INFORMATION
  Report Type: Spontaneous
  Country: US (occurrence: None)
  Receive Date: 20140409
  Receipt Date: 20140409
  Transmission Date: 20141212
  Serious: Yes (Life-Threatening, Hospitalization)
  Sender: FDA-Public Use
  Company Number: None

PATIENT
  Age: 58 Year
  Sex: Female
  Weight: 83.3 kg

DRUGS (8)
  1. YERVOY [Suspect]
     Indication: MALIGNANT MELANOMA
  2. TOPROL XL 12.5MG [Concomitant]
  3. LASIX 20 MG [Concomitant]
  4. ASA 81 MG [Concomitant]
  5. FISH OIL [Suspect]
  6. FLEXERIL 5MG [Concomitant]
  7. MVI [Concomitant]
  8. ULTRAM 50MG [Concomitant]

REACTIONS (8)
  - Pyrexia [None]
  - Abdominal pain [None]
  - Abdominal distension [None]
  - Early satiety [None]
  - Haematochezia [None]
  - Proctalgia [None]
  - Colitis [None]
  - Intestinal perforation [None]
